FAERS Safety Report 7440729-4 (Version None)
Quarter: 2011Q2

REPORT INFORMATION
  Report Type: 
  Country: None (occurrence: None)
  Receive Date: 20110427
  Receipt Date: 20110425
  Transmission Date: 20111010
  Serious: Yes (Other)
  Sender: FDA-Public Use
  Company Number: US-PFIZER INC-2011089234

PATIENT
  Sex: Female
  Weight: 74.83 kg

DRUGS (10)
  1. METOPROLOL [Concomitant]
     Dosage: 25 MG, 1X/DAY
  2. IRON [Concomitant]
     Dosage: 65 MG, UNK
  3. DILANTIN [Suspect]
     Indication: CONVULSION
     Dosage: 100 MG, 3X/DAY
     Route: 048
  4. PHENOBARBITAL [Concomitant]
     Dosage: 60 MG, 2X/DAY
  5. PRAVASTATIN [Concomitant]
     Dosage: 20 MG, UNK
  6. LANSOPRAZOLE [Concomitant]
     Dosage: UNK
  7. ACETYLSALICYLIC ACID [Concomitant]
     Dosage: 81 MG, 1X/DAY
  8. FOLIC ACID [Concomitant]
     Dosage: 1 MG, UNK
  9. NEXIUM [Concomitant]
     Dosage: 40 MG, UNK
  10. ALBUTEROL [Concomitant]
     Dosage: 2 MG, 2X/DAY

REACTIONS (3)
  - HYPERTENSION [None]
  - CARDIAC DISORDER [None]
  - MALAISE [None]
